FAERS Safety Report 6231709-5 (Version None)
Quarter: 2009Q2

REPORT INFORMATION
  Report Type: 
  Country: None (occurrence: None)
  Receive Date: 20090616
  Receipt Date: 20090601
  Transmission Date: 20091009
  Serious: Yes (Other)
  Sender: FDA-Public Use
  Company Number: US-GENENTECH-284886

PATIENT

DRUGS (1)
  1. AVASTIN [Suspect]
     Indication: GLAUCOMA
     Dosage: 1 DF, 1.25 MG / 0.05 ML
     Route: 031

REACTIONS (1)
  - VITREOUS HAEMORRHAGE [None]
